FAERS Safety Report 10748395 (Version 1)
Quarter: 2015Q1

REPORT INFORMATION
  Report Type: Spontaneous
  Country: GB (occurrence: GB)
  Receive Date: 20150129
  Receipt Date: 20150129
  Transmission Date: 20150721
  Serious: Yes (Hospitalization)
  Sender: FDA-Public Use
  Company Number: GB-CIPLA LTD.-2015GB00611

PATIENT

DRUGS (9)
  1. PHENYTOIN SODIUM. [Suspect]
     Active Substance: PHENYTOIN SODIUM
     Indication: CARDIOVASCULAR DISORDER
  2. SIMVASTIN [Concomitant]
     Active Substance: SIMVASTATIN
     Indication: CARDIOVASCULAR DISORDER
  3. RAMIPRIL. [Suspect]
     Active Substance: RAMIPRIL
     Indication: CARDIOVASCULAR DISORDER
  4. SIMVASTIN [Concomitant]
     Active Substance: SIMVASTATIN
     Indication: HYPERTENSION
     Dosage: 30 MG, TID
     Route: 048
  5. RAMIPRIL. [Suspect]
     Active Substance: RAMIPRIL
     Indication: HYPERTENSION
     Dosage: 40 MG, UNK
     Dates: start: 201409
  6. PHENOBARBITONE [Concomitant]
     Active Substance: PHENOBARBITAL
     Indication: HYPERTENSION
     Dosage: UNK
     Route: 048
  7. PHENOBARBITONE [Concomitant]
     Active Substance: PHENOBARBITAL
     Indication: CARDIOVASCULAR DISORDER
  8. FLYNN PHARMA PHENYTOIN [Suspect]
     Active Substance: PHENYTOIN
     Indication: GENERALISED TONIC-CLONIC SEIZURE
     Dosage: 100 MG, TID
  9. PHENYTOIN SODIUM. [Suspect]
     Active Substance: PHENYTOIN SODIUM
     Indication: HYPERTENSION
     Dosage: 5 MG, UNK
     Dates: start: 201409

REACTIONS (5)
  - Toxicity to various agents [Recovered/Resolved]
  - Vomiting [Unknown]
  - Confusional state [Recovered/Resolved]
  - Vertigo [Recovered/Resolved]
  - Ataxia [Recovered/Resolved]

NARRATIVE: CASE EVENT DATE: 20141023
